FAERS Safety Report 12131493 (Version 17)
Quarter: 2021Q2

REPORT INFORMATION
  Report Type: Spontaneous
  Country: US (occurrence: US)
  Receive Date: 20160301
  Receipt Date: 20210514
  Transmission Date: 20210716
  Serious: Yes (Hospitalization, Other)
  Sender: FDA-Public Use
  Company Number: US-PFIZER INC-2016115805

PATIENT
  Age: 55 Year
  Sex: Female
  Weight: 34 kg

DRUGS (4)
  1. LYRICA [Suspect]
     Active Substance: PREGABALIN
     Indication: SPINAL DISORDER
     Dosage: 300 MG, 3X/DAY
     Route: 048
     Dates: start: 2014
  2. LYRICA [Suspect]
     Active Substance: PREGABALIN
     Indication: FIBROMYALGIA
     Dosage: 300 MG, 2X/DAY
     Route: 048
  3. ALBUTEROL. [Concomitant]
     Active Substance: ALBUTEROL
     Indication: ASTHMA
     Dosage: 5 MG, EVERY 4 HRS (ABOUT SIX TIMES A DAY)
     Route: 055
  4. EFFIENT [Concomitant]
     Active Substance: PRASUGREL HYDROCHLORIDE
     Indication: CARDIAC DISORDER
     Dosage: UNK, 1X/DAY
     Dates: start: 2015

REACTIONS (32)
  - Peptic ulcer haemorrhage [Not Recovered/Not Resolved]
  - Haemorrhage [Unknown]
  - Peptic ulcer [Unknown]
  - Neuralgia [Unknown]
  - Depression [Not Recovered/Not Resolved]
  - Head injury [Unknown]
  - Prescribed overdose [Unknown]
  - Hypersensitivity [Unknown]
  - Dysphonia [Unknown]
  - Sneezing [Unknown]
  - Amnesia [Unknown]
  - Pain [Not Recovered/Not Resolved]
  - Heat illness [Unknown]
  - Pneumonia [Unknown]
  - Feeding disorder [Unknown]
  - Dehydration [Recovered/Resolved]
  - Lacrimation increased [Unknown]
  - Depressed mood [Unknown]
  - Lung neoplasm malignant [Unknown]
  - Near death experience [Unknown]
  - Movement disorder [Unknown]
  - Pain [Unknown]
  - Suicide attempt [Unknown]
  - Insomnia [Unknown]
  - Haemorrhage [Unknown]
  - Myocardial infarction [Unknown]
  - Gastric cancer [Unknown]
  - Fall [Unknown]
  - Atypical pneumonia [Unknown]
  - Nasopharyngitis [Unknown]
  - Weight decreased [Unknown]
  - Cough [Unknown]

NARRATIVE: CASE EVENT DATE: 2014
